FAERS Safety Report 19538423 (Version 1)
Quarter: 2021Q3

REPORT INFORMATION
  Report Type: Other
  Country: TW (occurrence: TW)
  Receive Date: 20210713
  Receipt Date: 20210713
  Transmission Date: 20211014
  Serious: Yes (Hospitalization, Other)
  Sender: FDA-Public Use
  Company Number: TW-NAVINTA LLC-000169

PATIENT
  Age: 7 Day
  Sex: Male
  Weight: .56 kg

DRUGS (1)
  1. INDOMETHACIN. [Suspect]
     Active Substance: INDOMETHACIN
     Indication: PATENT DUCTUS ARTERIOSUS
     Dosage: 0.2 MG/KG, TWO COURSES.

REACTIONS (2)
  - Gastric haemorrhage [Recovering/Resolving]
  - Hypovolaemic shock [Unknown]
